FAERS Safety Report 6234865-8 (Version None)
Quarter: 2009Q2

REPORT INFORMATION
  Report Type: 
  Country: None (occurrence: None)
  Receive Date: 20090618
  Receipt Date: 20090615
  Transmission Date: 20091009
  Serious: No
  Sender: FDA-Public Use
  Company Number: US-B.I. PHARMACEUTICALS,INC./RIDGEFIELD-2009-BP-07284BP

PATIENT
  Age: 88 Year
  Sex: Male

DRUGS (6)
  1. FLOMAX [Suspect]
     Indication: POLLAKIURIA
     Dosage: .4MG
     Route: 048
     Dates: start: 20090201
  2. AGGRENOX [Concomitant]
     Indication: CEREBROVASCULAR ACCIDENT PROPHYLAXIS
  3. FINASTERIDE [Concomitant]
  4. MICRONASE [Concomitant]
  5. PROSCAR [Concomitant]
     Indication: PROSTATE CANCER
  6. GLYBURIDE [Concomitant]
     Indication: DIABETES MELLITUS

REACTIONS (1)
  - NOCTURIA [None]
